FAERS Safety Report 4899360-7 (Version None)
Quarter: 2006Q1

REPORT INFORMATION
  Report Type: 
  Country: None (occurrence: None)
  Receive Date: 20060131
  Receipt Date: 20060124
  Transmission Date: 20060701
  Serious: Yes (Other)
  Sender: FDA-Public Use
  Company Number: 2006011761

PATIENT
  Age: 65 Year
  Sex: Female

DRUGS (1)
  1. CARDENALIN (DOXAZOSIN) [Suspect]
     Indication: ILL-DEFINED DISORDER
     Dosage: 2 MG ORAL
     Route: 048

REACTIONS (2)
  - DEAFNESS [None]
  - HEARING IMPAIRED [None]
